FAERS Safety Report 4911649-1 (Version None)
Quarter: 2006Q1

REPORT INFORMATION
  Report Type: 
  Country: None (occurrence: None)
  Receive Date: 20060213
  Receipt Date: 20060130
  Transmission Date: 20060701
  Serious: Yes (Other)
  Sender: FDA-Public Use
  Company Number: 2005169192

PATIENT
  Age: 79 Year
  Sex: Female
  Weight: 53.0709 kg

DRUGS (7)
  1. LIPITOR [Suspect]
     Indication: BLOOD CHOLESTEROL INCREASED
     Dosage: 20 MG (20 MG, 1 IN 1 D), ORAL
     Route: 048
     Dates: start: 20010101
  2. WARFARIN SODIUM [Concomitant]
  3. PREDNISONE [Concomitant]
  4. PEPCID [Concomitant]
  5. FOSAMAX [Concomitant]
  6. CALCIUM WITH VITAMIN D (CALCIUM PHOSPHATE, CALCIUM SODIUM LACTATE, ERG [Concomitant]
  7. GLUCOSAMINE (GLUCOSAMINE) [Concomitant]

REACTIONS (5)
  - BACK PAIN [None]
  - BODY HEIGHT DECREASED [None]
  - DYSPHASIA [None]
  - MACULAR DEGENERATION [None]
  - SPINAL FRACTURE [None]
